FAERS Safety Report 7121176-1 (Version None)
Quarter: 2010Q4

REPORT INFORMATION
  Report Type: 
  Country: None (occurrence: None)
  Receive Date: 20101124
  Receipt Date: 20101111
  Transmission Date: 20110411
  Serious: No
  Sender: FDA-Public Use
  Company Number: PHHY2010JP77892

PATIENT
  Age: 89 Year
  Sex: Female

DRUGS (1)
  1. MIKELAN LA 2% (NVO) [Suspect]
     Indication: GLAUCOMA
     Dosage: UNK
     Route: 048
     Dates: start: 20101111

REACTIONS (1)
  - ACCIDENTAL EXPOSURE [None]
